FAERS Safety Report 5092363-1 (Version None)
Quarter: 2006Q3

REPORT INFORMATION
  Report Type: 
  Country: None (occurrence: None)
  Receive Date: 20060825
  Receipt Date: 20060807
  Transmission Date: 20061208
  Serious: Yes (Hospitalization, Other)
  Sender: FDA-Public Use
  Company Number: US200608002384

PATIENT
  Age: 51 Year
  Sex: Male
  Weight: 83.9 kg

DRUGS (5)
  1. ZYPREXA [Suspect]
     Indication: NERVOUSNESS
     Dosage: MONTHLY (1/M), INTRAMUSCULAR
     Route: 030
     Dates: start: 19980101, end: 20040101
  2. HALDOL [Concomitant]
  3. COGENTIN [Concomitant]
  4. BENZTROPINE MESYLATE [Concomitant]
  5. PROLIXIN [Concomitant]

REACTIONS (4)
  - CEREBROVASCULAR ACCIDENT [None]
  - CEREBROVASCULAR DISORDER [None]
  - CORONARY ARTERY BYPASS [None]
  - DIABETES MELLITUS [None]
